FAERS Safety Report 20393496 (Version 1)
Quarter: 2022Q1

REPORT INFORMATION
  Report Type: Spontaneous
  Country: PT (occurrence: PT)
  Receive Date: 20220128
  Receipt Date: 20220128
  Transmission Date: 20220423
  Serious: Yes (Hospitalization, Other)
  Sender: FDA-Public Use
  Company Number: PT-GILEAD-2022-0567243

PATIENT
  Age: 54 Year

DRUGS (1)
  1. BIKTARVY [Suspect]
     Active Substance: BICTEGRAVIR SODIUM\EMTRICITABINE\TENOFOVIR ALAFENAMIDE FUMARATE
     Indication: HIV infection
     Dosage: UNK
     Route: 065
     Dates: start: 20210820

REACTIONS (4)
  - Kaposi^s sarcoma [Recovered/Resolved]
  - Cytomegalovirus colitis [Unknown]
  - Immune reconstitution inflammatory syndrome [Unknown]
  - Diarrhoea [Recovering/Resolving]
